FAERS Safety Report 9567672 (Version 1)
Quarter: 2013Q3

REPORT INFORMATION
  Report Type: Spontaneous
  Country: US (occurrence: US)
  Receive Date: 20130930
  Receipt Date: 20130930
  Transmission Date: 20140515
  Serious: No
  Sender: FDA-Public Use
  Company Number: US-AMGEN-USASP2012083174

PATIENT
  Age: 50 Year
  Sex: Male

DRUGS (2)
  1. ENBREL [Suspect]
     Indication: RHEUMATOID ARTHRITIS
     Dosage: 50 MG, QWK
     Route: 058
     Dates: start: 201210
  2. IMURAN                             /00001501/ [Concomitant]
     Dosage: UNK

REACTIONS (3)
  - Rheumatoid arthritis [Unknown]
  - Nausea [Unknown]
  - Malaise [Unknown]
